FAERS Safety Report 4554037-2 (Version None)
Quarter: 2005Q1

REPORT INFORMATION
  Report Type: 
  Country: None (occurrence: None)
  Receive Date: 20050118
  Receipt Date: 20041011
  Transmission Date: 20050727
  Serious: Yes (Life-Threatening, Disabling)
  Sender: FDA-Public Use
  Company Number: US-MERCK-0412USA01929

PATIENT
  Age: 49 Year
  Sex: Female
  Weight: 93 kg

DRUGS (7)
  1. VIOXX [Suspect]
     Indication: OSTEOARTHRITIS
     Route: 048
     Dates: start: 20000101, end: 20030101
  2. VIOXX [Suspect]
     Route: 048
     Dates: start: 20030106, end: 20030401
  3. VIOXX [Suspect]
     Route: 048
     Dates: start: 20030426, end: 20030101
  4. VIOXX [Suspect]
     Route: 048
     Dates: start: 20040614, end: 20040701
  5. VIOXX [Suspect]
     Route: 048
     Dates: start: 20040723, end: 20040901
  6. VIOXX [Suspect]
     Route: 048
     Dates: start: 20040908, end: 20040930
  7. VIOXX [Suspect]
     Route: 048
     Dates: start: 20030825

REACTIONS (15)
  - ABDOMINAL HERNIA [None]
  - ANXIETY [None]
  - CARDIAC MURMUR [None]
  - CARDIAC VALVE DISEASE [None]
  - CHEST PAIN [None]
  - DIZZINESS [None]
  - EAR PAIN [None]
  - FATIGUE [None]
  - GASTRIC HAEMORRHAGE [None]
  - GOUT [None]
  - HYPOAESTHESIA [None]
  - JOINT INJURY [None]
  - LIMB INJURY [None]
  - MEDICATION ERROR [None]
  - RHINITIS ALLERGIC [None]
